FAERS Safety Report 9846210 (Version 2)
Quarter: 2014Q1

REPORT INFORMATION
  Report Type: Spontaneous
  Country: MY (occurrence: MY)
  Receive Date: 20140127
  Receipt Date: 20140325
  Transmission Date: 20141002
  Serious: No
  Sender: FDA-Public Use
  Company Number: MY-PFIZER INC-2014020259

PATIENT
  Age: 65 Year
  Sex: Male
  Weight: 80 kg

DRUGS (3)
  1. UNASYN [Suspect]
     Indication: CELLULITIS
     Dosage: 1.5 G, 3X/DAY
     Route: 042
     Dates: start: 20120808, end: 20120809
  2. PIRITON [Concomitant]
     Indication: ANAPHYLAXIS TREATMENT
     Dosage: 4 MG, 3X/DAY
     Dates: start: 20120808
  3. HYDROCORTISONE [Concomitant]
     Indication: ANAPHYLAXIS TREATMENT
     Dosage: 100 MG, 3X/DAY
     Route: 042
     Dates: start: 20120808, end: 20120809

REACTIONS (3)
  - Eye swelling [Unknown]
  - Pruritus [Unknown]
  - Erythema [Unknown]
